FAERS Safety Report 9271411 (Version 2)
Quarter: 2013Q2

REPORT INFORMATION
  Report Type: Spontaneous
  Country: US (occurrence: US)
  Receive Date: 20130506
  Receipt Date: 20130610
  Transmission Date: 20140414
  Serious: Yes (Other)
  Sender: FDA-Public Use
  Company Number: US-PFIZER INC-2013136764

PATIENT
  Age: 60 Year
  Sex: Male
  Weight: 82.99 kg

DRUGS (7)
  1. CELEBREX [Suspect]
     Indication: ARTHRITIS
     Dosage: 1 DF, 1X/DAY
     Route: 048
     Dates: start: 20130407, end: 20130407
  2. BYSTOLIC [Concomitant]
     Dosage: 5 MG, 1X/DAY
     Route: 048
  3. SYNTHROID [Concomitant]
     Dosage: 50 UG, 1X/DAY
     Route: 048
  4. TRICOR [Concomitant]
     Dosage: 145 MG, 1X/DAY
     Route: 048
  5. VYTORIN [Concomitant]
     Dosage: EZETIMIBE10/ SIMVASTATIN 20, EVERY DAY
     Route: 048
  6. VITAMIN D3 [Concomitant]
     Dosage: 1000 IU, 1X/DAY
     Route: 048
  7. ECOTRIN [Concomitant]
     Dosage: 81 MG, 1X/DAY
     Route: 048

REACTIONS (5)
  - Anaphylactic reaction [Recovered/Resolved]
  - Swelling face [Recovered/Resolved]
  - Angioedema [Recovered/Resolved]
  - Oedema mouth [Recovered/Resolved]
  - Swollen tongue [Recovered/Resolved]
